FAERS Safety Report 9829915 (Version 3)
Quarter: 2014Q1

REPORT INFORMATION
  Report Type: Report from Study
  Country: CN (occurrence: CN)
  Receive Date: 20140120
  Receipt Date: 20140305
  Transmission Date: 20141002
  Serious: Yes (Hospitalization)
  Sender: FDA-Public Use
  Company Number: CN-ASTELLAS-2014JP000389

PATIENT
  Age: 48 Year
  Sex: Female
  Weight: 57 kg

DRUGS (6)
  1. TACROLIMUS [Suspect]
     Indication: NEPHROTIC SYNDROME
     Dosage: 1 MG, UNKNOWN/D
     Route: 048
     Dates: start: 20131122, end: 20140107
  2. TACROLIMUS [Suspect]
     Dosage: 2 MG, UNKNOWN/D
     Route: 048
     Dates: start: 20130507, end: 20131010
  3. TACROLIMUS [Suspect]
     Dosage: 1.5 MG, UNKNOWN/D
     Route: 048
     Dates: start: 20131011, end: 20131121
  4. TACROLIMUS [Suspect]
     Dosage: 0.5 MG, UID/QD
     Route: 048
  5. DIQIAO [Concomitant]
     Dosage: 2 DF, UNKNOWN/D
     Route: 048
     Dates: start: 20130511
  6. THYMOPEPTIDE                       /00666801/ [Concomitant]
     Dosage: 60 MG, UNKNOWN/D
     Route: 065
     Dates: start: 20130511

REACTIONS (1)
  - Nephrotic syndrome [Recovered/Resolved]
